FAERS Safety Report 5779762-7 (Version None)
Quarter: 2008Q2

REPORT INFORMATION
  Report Type: 
  Country: None (occurrence: None)
  Receive Date: 20080617
  Receipt Date: 20080610
  Transmission Date: 20081010
  Serious: Yes (Other)
  Sender: FDA-Public Use
  Company Number: 028855

PATIENT
  Age: 56 Year
  Sex: Male

DRUGS (2)
  1. TREXALL [Suspect]
     Dosage: 7.5 MG, 1/WEEK,
     Dates: start: 20000101, end: 20070101
  2. ENBREL [Suspect]
     Indication: ANKYLOSING SPONDYLITIS
     Dosage: 50 MG, 1/WEEK, SUBCUTANEOUS
     Route: 058
     Dates: start: 20021101

REACTIONS (2)
  - B-CELL LYMPHOMA STAGE IV [None]
  - EPSTEIN-BARR VIRUS TEST POSITIVE [None]
